FAERS Safety Report 6425277-2 (Version None)
Quarter: 2009Q4

REPORT INFORMATION
  Report Type: 
  Country: None (occurrence: None)
  Receive Date: 20091102
  Receipt Date: 20091102
  Transmission Date: 20100525
  Serious: Yes (Life-Threatening, Hospitalization, Other)
  Sender: FDA-Public Use
  Company Number: None

PATIENT
  Age: 76 Year
  Sex: Male
  Weight: 68.0396 kg

DRUGS (8)
  1. VICODIN ES [Suspect]
     Indication: HEAD INJURY
     Dosage: ONE TABLET FOUR TIMES A DAY QID PO
     Route: 048
     Dates: start: 20070705, end: 20080115
  2. VICODIN ES [Suspect]
     Indication: PAIN
     Dosage: ONE TABLET FOUR TIMES A DAY QID PO
     Route: 048
     Dates: start: 20070705, end: 20080115
  3. VICODIN ES [Suspect]
     Indication: SPINAL COLUMN INJURY
     Dosage: ONE TABLET FOUR TIMES A DAY QID PO
     Route: 048
     Dates: start: 20070705, end: 20080115
  4. VICODIN ES [Suspect]
     Indication: VICTIM OF CRIME
     Dosage: ONE TABLET FOUR TIMES A DAY QID PO
     Route: 048
     Dates: start: 20070705, end: 20080115
  5. VICODIN ES [Suspect]
     Indication: HEAD INJURY
     Dosage: ONE TABLET FOUR TIMES A DAY QID PO
     Route: 048
     Dates: start: 20070705, end: 20090228
  6. VICODIN ES [Suspect]
     Indication: PAIN
     Dosage: ONE TABLET FOUR TIMES A DAY QID PO
     Route: 048
     Dates: start: 20070705, end: 20090228
  7. VICODIN ES [Suspect]
     Indication: SPINAL COLUMN INJURY
     Dosage: ONE TABLET FOUR TIMES A DAY QID PO
     Route: 048
     Dates: start: 20070705, end: 20090228
  8. VICODIN ES [Suspect]
     Indication: VICTIM OF CRIME
     Dosage: ONE TABLET FOUR TIMES A DAY QID PO
     Route: 048
     Dates: start: 20070705, end: 20090228

REACTIONS (7)
  - DENTAL CARIES [None]
  - INHIBITORY DRUG INTERACTION [None]
  - PNEUMONIA [None]
  - SKIN INFECTION [None]
  - TOOTH DISORDER [None]
  - TOOTH INFECTION [None]
  - UNEVALUABLE EVENT [None]
